FAERS Safety Report 7511295-X (Version None)
Quarter: 2011Q2

REPORT INFORMATION
  Report Type: 
  Country: None (occurrence: None)
  Receive Date: 20110531
  Receipt Date: 20110516
  Transmission Date: 20111010
  Serious: Yes (Hospitalization, Other)
  Sender: FDA-Public Use
  Company Number: US-BAYER-201039063NA

PATIENT
  Age: 28 Year
  Sex: Female
  Weight: 102.4 kg

DRUGS (2)
  1. YASMIN [Suspect]
     Indication: CONTRACEPTION
     Dosage: UNK
     Route: 048
     Dates: start: 20030101, end: 20040101
  2. MICRONOR [Concomitant]
     Dosage: UNK
     Route: 048
     Dates: start: 20040209

REACTIONS (6)
  - PAIN [None]
  - DEEP VEIN THROMBOSIS [None]
  - THROMBOSIS [None]
  - PELVIC VENOUS THROMBOSIS [None]
  - GALLBLADDER NON-FUNCTIONING [None]
  - OEDEMA PERIPHERAL [None]
